FAERS Safety Report 20591952 (Version 1)
Quarter: 2022Q1

REPORT INFORMATION
  Report Type: Other
  Country: None (occurrence: US)
  Receive Date: 20220314
  Receipt Date: 20220314
  Transmission Date: 20220423
  Serious: Yes (Other)
  Sender: FDA-Public Use
  Company Number: US-Ascent Pharmaceuticals, Inc.-2126769

PATIENT

DRUGS (1)
  1. METHYLPHENIDATE HYDROCHLORIDE [Suspect]
     Active Substance: METHYLPHENIDATE HYDROCHLORIDE
     Indication: Attention deficit hyperactivity disorder
     Route: 065

REACTIONS (6)
  - Suicidal behaviour [Recovering/Resolving]
  - Depressive symptom [Recovering/Resolving]
  - Drug ineffective [Unknown]
  - Sleep disorder [Recovering/Resolving]
  - Headache [Recovering/Resolving]
  - Product substitution issue [Unknown]
